FAERS Safety Report 10644690 (Version 1)
Quarter: 2014Q4

REPORT INFORMATION
  Report Type: Spontaneous
  Country: DE (occurrence: DE)
  Receive Date: 20141211
  Receipt Date: 20141211
  Transmission Date: 20150529
  Serious: Yes (Other)
  Sender: FDA-Public Use
  Company Number: DE-JNJFOC-20141115040

PATIENT
  Sex: Female

DRUGS (4)
  1. LANZOPRAZOL [Concomitant]
     Active Substance: LANSOPRAZOLE
     Route: 065
  2. L-THYROXIN [Concomitant]
     Active Substance: LEVOTHYROXINE SODIUM
     Route: 048
  3. REGAINE FRAUEN [Suspect]
     Active Substance: MINOXIDIL
     Route: 061
  4. REGAINE FRAUEN [Suspect]
     Active Substance: MINOXIDIL
     Indication: PRODUCT USED FOR UNKNOWN INDICATION
     Route: 061

REACTIONS (2)
  - Dyspnoea [Unknown]
  - Cardiac flutter [Unknown]
